FAERS Safety Report 13177396 (Version 1)
Quarter: 2017Q1

REPORT INFORMATION
  Report Type: Report from Study
  Country: US (occurrence: US)
  Receive Date: 20170201
  Receipt Date: 20170201
  Transmission Date: 20170428
  Serious: No
  Sender: FDA-Public Use
  Company Number: US-EXELIXIS-CABO-16006095

PATIENT
  Sex: Male

DRUGS (1)
  1. COMETRIQ [Suspect]
     Active Substance: CABOZANTINIB S-MALATE
     Indication: NEOPLASM MALIGNANT
     Dosage: 60 MG, QD
     Route: 048
     Dates: start: 20160211

REACTIONS (6)
  - Pain [Unknown]
  - Nodule [Unknown]
  - Blood urine present [Unknown]
  - Off label use [Unknown]
  - Peripheral swelling [Unknown]
  - Rash [Unknown]
